FAERS Safety Report 11598601 (Version 1)
Quarter: 2015Q4

REPORT INFORMATION
  Report Type: Spontaneous
  Country: US (occurrence: US)
  Receive Date: 20151006
  Receipt Date: 20151006
  Transmission Date: 20160304
  Serious: No
  Sender: FDA-Public Use
  Company Number: US-BAYER-2015-425072

PATIENT
  Sex: Female

DRUGS (2)
  1. FINACEA [Suspect]
     Active Substance: AZELAIC ACID
     Indication: PRURITUS
     Dosage: UNK
  2. FINACEA [Suspect]
     Active Substance: AZELAIC ACID
     Indication: RASH PUSTULAR

REACTIONS (2)
  - Rash [None]
  - Rash papular [None]
